FAERS Safety Report 8820538 (Version 1)
Quarter: 2012Q4

REPORT INFORMATION
  Report Type: 
  Country: FR (occurrence: FR)
  Receive Date: 20121002
  Receipt Date: 20121002
  Transmission Date: 20130627
  Serious: Yes (Hospitalization)
  Sender: FDA-Public Use
  Company Number: FR-ASTRAZENECA-2012SE74232

PATIENT
  Age: 21656 Day
  Sex: Female

DRUGS (3)
  1. DIPRIVAN [Suspect]
     Indication: PREMEDICATION
     Route: 042
     Dates: start: 20120810, end: 20120810
  2. ATARAX [Suspect]
     Indication: PREMEDICATION
     Route: 065
     Dates: start: 20120810, end: 20120812
  3. LAMICTAL [Concomitant]

REACTIONS (1)
  - Acute generalised exanthematous pustulosis [Recovered/Resolved]
